FAERS Safety Report 21172659 (Version 3)
Quarter: 2023Q2

REPORT INFORMATION
  Report Type: Spontaneous
  Country: US (occurrence: US)
  Receive Date: 20220804
  Receipt Date: 20230601
  Transmission Date: 20230722
  Serious: No
  Sender: FDA-Public Use
  Company Number: US-PFIZER INC-PV202200035799

PATIENT
  Age: 86 Year
  Sex: Male

DRUGS (2)
  1. IBRANCE [Suspect]
     Active Substance: PALBOCICLIB
     Indication: Breast cancer male
     Dosage: 125 MG, 1X/DAY (WITH OR WITHOUT FOOD ON DAYS 1 -21 EVERY 28 DAY CYCLE)
     Route: 048
  2. ANASTROZOLE [Concomitant]
     Active Substance: ANASTROZOLE
     Dosage: UNK

REACTIONS (3)
  - Fatigue [Unknown]
  - Memory impairment [Unknown]
  - Electric shock sensation [Unknown]
